FAERS Safety Report 14010294 (Version 9)
Quarter: 2017Q4

REPORT INFORMATION
  Report Type: Report from Study
  Country: CA (occurrence: CA)
  Receive Date: 20170926
  Receipt Date: 20171223
  Transmission Date: 20180321
  Serious: Yes (Hospitalization, Other)
  Sender: FDA-Public Use
  Company Number: CA-AMGEN-CANSL2017142038

PATIENT
  Age: 50 Year
  Sex: Male
  Weight: 120 kg

DRUGS (11)
  1. NOVORAPID [Concomitant]
     Active Substance: INSULIN ASPART
     Dosage: 10 FROM 4 UNITS
  2. HUMULIN NOS [Concomitant]
     Active Substance: INSULIN HUMAN
     Dosage: 70 FROM 6 UNITS
  3. NPLATE [Suspect]
     Active Substance: ROMIPLOSTIM
     Dosage: 600 MUG, UNK
     Route: 065
     Dates: start: 20170928
  4. NPLATE [Suspect]
     Active Substance: ROMIPLOSTIM
     Dosage: 250 MUG/0.5 ML, UNK
     Route: 065
     Dates: start: 2017
  5. NPLATE [Suspect]
     Active Substance: ROMIPLOSTIM
     Indication: IMMUNE THROMBOCYTOPENIC PURPURA
     Dosage: 500 MUG /1.0 ML, UNK
     Route: 065
     Dates: start: 20170914
  6. NPLATE [Suspect]
     Active Substance: ROMIPLOSTIM
     Dosage: 500 MUG /0.5 ML, UNK
     Route: 065
     Dates: start: 2017
  7. RITUXAN [Concomitant]
     Active Substance: RITUXIMAB
     Dosage: UNK, QWK (EVERY WEEK FOR FOUR WEEKS)
  8. NPLATE [Suspect]
     Active Substance: ROMIPLOSTIM
     Dosage: 700 MUG, QWK
     Route: 058
     Dates: start: 20171123
  9. NPLATE [Suspect]
     Active Substance: ROMIPLOSTIM
     Dosage: 800 MUG, QWK
     Route: 058
     Dates: start: 2017
  10. PREDNISONE. [Concomitant]
     Active Substance: PREDNISONE
     Dosage: 30 MG TO 40 MG, QD
     Route: 065
  11. INSULIN [Concomitant]
     Active Substance: INSULIN NOS
     Indication: PRODUCT USED FOR UNKNOWN INDICATION
     Dosage: UNK
     Route: 065

REACTIONS (5)
  - Platelet count abnormal [Not Recovered/Not Resolved]
  - Renal mass [Unknown]
  - Contusion [Unknown]
  - Blood pressure increased [Unknown]
  - Breast conserving surgery [Unknown]

NARRATIVE: CASE EVENT DATE: 2017
